FAERS Safety Report 7532178-5 (Version None)
Quarter: 2011Q2

REPORT INFORMATION
  Report Type: 
  Country: None (occurrence: None)
  Receive Date: 20110608
  Receipt Date: 20110524
  Transmission Date: 20111010
  Serious: No
  Sender: FDA-Public Use
  Company Number: US-B.I. PHARMACEUTICALS,INC./RIDGEFIELD-2011-BP-10446BP

PATIENT
  Sex: Female

DRUGS (6)
  1. METOLAZONE [Concomitant]
  2. GLIPIZIDE [Concomitant]
     Indication: DIABETES MELLITUS
     Route: 048
  3. SOTALOL HCL [Concomitant]
     Indication: HYPERTENSION
     Route: 048
  4. NEOPOLY/HC OTIC [Concomitant]
  5. PRADAXA [Suspect]
     Indication: HEART RATE IRREGULAR
     Dosage: 300 MG
     Route: 048
     Dates: start: 20110308
  6. HYDROCHLOROTHIAZIDE [Concomitant]
     Indication: HYPERTENSION
     Route: 048

REACTIONS (6)
  - RASH [None]
  - DYSPEPSIA [None]
  - DIZZINESS [None]
  - CONTUSION [None]
  - URTICARIA [None]
  - PRURITUS [None]
